FAERS Safety Report 7774660-1 (Version None)
Quarter: 2011Q3

REPORT INFORMATION
  Report Type: 
  Country: None (occurrence: None)
  Receive Date: 20110923
  Receipt Date: 20110921
  Transmission Date: 20111222
  Serious: Yes (Death)
  Sender: FDA-Public Use
  Company Number: EC-ROCHE-803847

PATIENT
  Sex: Male
  Weight: 59.9 kg

DRUGS (1)
  1. BONIVA [Suspect]
     Indication: OSTEOPOROSIS
     Route: 042
     Dates: start: 20101101, end: 20110818

REACTIONS (1)
  - HEAD INJURY [None]
